FAERS Safety Report 21936377 (Version 1)
Quarter: 2023Q1

REPORT INFORMATION
  Report Type: Other
  Country: DE (occurrence: None)
  Receive Date: 20230201
  Receipt Date: 20230201
  Transmission Date: 20230417
  Serious: Yes (Other)
  Sender: FDA-Public Use
  Company Number: DE-ROCHE-3230126

PATIENT
  Age: 37 Year
  Sex: Female

DRUGS (8)
  1. OCRELIZUMAB [Suspect]
     Active Substance: OCRELIZUMAB
     Indication: Relapsing multiple sclerosis
     Route: 042
     Dates: start: 20210224, end: 20210317
  2. OCRELIZUMAB [Suspect]
     Active Substance: OCRELIZUMAB
     Indication: Multiple sclerosis
     Route: 042
     Dates: start: 20210901
  3. ALBUTEROL [Concomitant]
     Active Substance: ALBUTEROL
     Indication: Asthma
  4. CHOLECALCIFEROL [Concomitant]
     Active Substance: CHOLECALCIFEROL
     Route: 048
  5. DESFESOTERODINE SUCCINATE [Concomitant]
     Active Substance: DESFESOTERODINE SUCCINATE
     Indication: Bladder disorder
     Dates: start: 202108
  6. DESFESOTERODINE SUCCINATE [Concomitant]
     Active Substance: DESFESOTERODINE SUCCINATE
     Indication: Micturition urgency
  7. TIZANIDINE [Concomitant]
     Active Substance: TIZANIDINE
     Indication: Muscle spasticity
     Route: 048
     Dates: start: 20220302
  8. BUDESONIDE [Concomitant]
     Active Substance: BUDESONIDE
     Indication: Asthma

REACTIONS (2)
  - White blood cell count increased [Recovered/Resolved]
  - Cholecystitis [Recovered/Resolved]

NARRATIVE: CASE EVENT DATE: 20220819
